FAERS Safety Report 8281598-2 (Version None)
Quarter: 2012Q2

REPORT INFORMATION
  Report Type: 
  Country: None (occurrence: None)
  Receive Date: 20120413
  Receipt Date: 20120405
  Transmission Date: 20120825
  Serious: Yes (Disabling)
  Sender: FDA-Public Use
  Company Number: FR-US-EMD SERONO, INC.-7123806

PATIENT
  Sex: Female
  Weight: 46 kg

DRUGS (2)
  1. GONAL-F [Suspect]
     Indication: PRODUCT USED FOR UNKNOWN INDICATION
     Route: 058
     Dates: start: 20070101, end: 20080101
  2. PUREGON [Suspect]
     Indication: PRODUCT USED FOR UNKNOWN INDICATION
     Route: 058
     Dates: start: 20070101, end: 20080101

REACTIONS (2)
  - EYE HAEMORRHAGE [None]
  - NEOVASCULARISATION [None]
